FAERS Safety Report 13157282 (Version 2)
Quarter: 2017Q1

REPORT INFORMATION
  Report Type: Spontaneous
  Country: US (occurrence: US)
  Receive Date: 20170127
  Receipt Date: 20170213
  Transmission Date: 20170428
  Serious: Yes (Death, Life-Threatening, Hospitalization, Other)
  Sender: FDA-Public Use
  Company Number: US-009507513-1701USA010017

PATIENT
  Sex: Female

DRUGS (1)
  1. ZETIA [Suspect]
     Active Substance: EZETIMIBE
     Indication: BLOOD CHOLESTEROL INCREASED
     Dosage: UNK
     Route: 048

REACTIONS (11)
  - Gastrointestinal haemorrhage [Unknown]
  - Anaemia [Unknown]
  - Ammonia increased [Unknown]
  - Blood potassium decreased [Unknown]
  - Cardiac failure congestive [Fatal]
  - Diabetes mellitus [Unknown]
  - Hepatic cirrhosis [Fatal]
  - Renal failure [Fatal]
  - Pneumonia [Fatal]
  - Functional gastrointestinal disorder [Fatal]
  - Haemoglobin decreased [Unknown]
